FAERS Safety Report 19721069 (Version 2)
Quarter: 2021Q4

REPORT INFORMATION
  Report Type: Spontaneous
  Country: US (occurrence: US)
  Receive Date: 20210819
  Receipt Date: 20211008
  Transmission Date: 20220303
  Serious: Yes (Death)
  Sender: FDA-Public Use
  Company Number: NVSC2021US187573

PATIENT
  Sex: Female

DRUGS (1)
  1. LUTATHERA [Suspect]
     Active Substance: LUTETIUM OXODOTREOTIDE LU-177
     Indication: Neoplasm malignant
     Dosage: RECEIVED DOSES-2
     Route: 065
     Dates: start: 20210715, end: 20210715

REACTIONS (2)
  - Neoplasm malignant [Fatal]
  - Malignant neoplasm progression [Fatal]
